FAERS Safety Report 12687154 (Version 1)
Quarter: 2016Q3

REPORT INFORMATION
  Report Type: Spontaneous
  Country: US (occurrence: US)
  Receive Date: 20160825
  Receipt Date: 20160825
  Transmission Date: 20161109
  Serious: No
  Sender: FDA-Public Use
  Company Number: US-LUNDBECK-DKLU2018085

PATIENT
  Age: 27 Year
  Sex: Female

DRUGS (1)
  1. NORTHERA [Suspect]
     Active Substance: DROXIDOPA
     Indication: HEART RATE DECREASED
     Route: 065
     Dates: start: 20160713, end: 201608

REACTIONS (5)
  - Blood pressure increased [Unknown]
  - Headache [Unknown]
  - Heart rate increased [Unknown]
  - Memory impairment [Unknown]
  - Dizziness [Unknown]

NARRATIVE: CASE EVENT DATE: 201608
